FAERS Safety Report 15365845 (Version 2)
Quarter: 2019Q1

REPORT INFORMATION
  Report Type: Spontaneous
  Country: US (occurrence: US)
  Receive Date: 20180910
  Receipt Date: 20190318
  Transmission Date: 20190417
  Serious: No
  Sender: FDA-Public Use
  Company Number: US-PFIZER INC-2018362323

PATIENT
  Age: 64 Year
  Sex: Female

DRUGS (1)
  1. IBRANCE [Suspect]
     Active Substance: PALBOCICLIB
     Indication: BREAST CANCER FEMALE
     Dosage: 125 MG, CYCLIC(TAKE 1 CAPSULE BY MOUTH DAILY FOR 21 DAYS THEN STOP FOR 7 DAYS (28 DAY CYCLE)RESTART)
     Route: 048

REACTIONS (1)
  - Depression [Unknown]
